FAERS Safety Report 22289579 (Version 4)
Quarter: 2024Q2

REPORT INFORMATION
  Report Type: Report from Study
  Country: BG (occurrence: BG)
  Receive Date: 20230505
  Receipt Date: 20240405
  Transmission Date: 20240715
  Serious: Yes (Hospitalization, Other)
  Sender: FDA-Public Use
  Company Number: BG-TAKEDA-2023TUS043944

PATIENT
  Age: 69 Year
  Sex: Male

DRUGS (1)
  1. VEDOLIZUMAB [Suspect]
     Active Substance: VEDOLIZUMAB
     Indication: Colitis ulcerative
     Dosage: 108 MILLIGRAM, Q2WEEKS
     Route: 058
     Dates: start: 20210729, end: 20230527

REACTIONS (3)
  - Transient ischaemic attack [Unknown]
  - Rash macular [Unknown]
  - Dizziness [Unknown]

NARRATIVE: CASE EVENT DATE: 20230403
